FAERS Safety Report 8097086-2 (Version None)
Quarter: 2012Q1

REPORT INFORMATION
  Report Type: 
  Country: None (occurrence: None)
  Receive Date: 20120129
  Receipt Date: 20111209
  Transmission Date: 20120608
  Serious: No
  Sender: FDA-Public Use
  Company Number: US-ABBOTT-11P-163-0881997-00

PATIENT
  Sex: Male
  Weight: 77.18 kg

DRUGS (2)
  1. HUMIRA [Suspect]
     Indication: PSORIASIS
     Dates: start: 20111201
  2. ACYCLOVIR [Concomitant]
     Indication: GENITAL HERPES

REACTIONS (2)
  - INJECTION SITE REACTION [None]
  - INJECTION SITE HAEMATOMA [None]
